FAERS Safety Report 17418141 (Version 2)
Quarter: 2020Q1

REPORT INFORMATION
  Report Type: Report from Study
  Country: None (occurrence: US)
  Receive Date: 20200213
  Receipt Date: 20200316
  Transmission Date: 20200409
  Serious: Yes (Hospitalization, Other)
  Sender: FDA-Public Use
  Company Number: US-ABBVIE-20K-163-3272622-00

PATIENT
  Age: 61 Year
  Sex: Female

DRUGS (2)
  1. HUMIRA [Suspect]
     Active Substance: ADALIMUMAB
     Route: 058
     Dates: start: 20191220
  2. HUMIRA [Suspect]
     Active Substance: ADALIMUMAB
     Indication: PSORIATIC ARTHROPATHY
     Route: 058
     Dates: start: 2016, end: 201805

REACTIONS (15)
  - Anxiety [Unknown]
  - Joint range of motion decreased [Unknown]
  - Gastrooesophageal reflux disease [Recovered/Resolved]
  - Neck pain [Recovering/Resolving]
  - Rectocele [Unknown]
  - Cystocele [Unknown]
  - Oesophageal food impaction [Unknown]
  - Depressed mood [Unknown]
  - Muscle spasms [Recovering/Resolving]
  - Product administered at inappropriate site [Unknown]
  - Muscle spasms [Unknown]
  - Loss of personal independence in daily activities [Not Recovered/Not Resolved]
  - Gait disturbance [Recovering/Resolving]
  - Psoriatic arthropathy [Recovering/Resolving]
  - Impaired self-care [Not Recovered/Not Resolved]

NARRATIVE: CASE EVENT DATE: 20200312
